FAERS Safety Report 5477506-X (Version None)
Quarter: 2007Q4

REPORT INFORMATION
  Report Type: 
  Country: None (occurrence: None)
  Receive Date: 20071004
  Receipt Date: 20070925
  Transmission Date: 20080405
  Serious: Yes (Other)
  Sender: FDA-Public Use
  Company Number: BR-PFIZER INC-2007057884

PATIENT
  Sex: Female
  Weight: 92 kg

DRUGS (2)
  1. FARLUTAL [Suspect]
     Indication: MENSTRUATION IRREGULAR
     Route: 048
     Dates: start: 20050801, end: 20070901
  2. FARLUTAL [Suspect]
     Route: 048

REACTIONS (5)
  - ABORTION SPONTANEOUS [None]
  - ANXIETY [None]
  - BLOOD GLUCOSE INCREASED [None]
  - BLOOD PRESSURE INCREASED [None]
  - WEIGHT INCREASED [None]
